FAERS Safety Report 18064086 (Version 4)
Quarter: 2020Q4

REPORT INFORMATION
  Report Type: Report from Study
  Country: US (occurrence: US)
  Receive Date: 20200724
  Receipt Date: 20201121
  Transmission Date: 20210113
  Serious: No
  Sender: FDA-Public Use
  Company Number: NVSC2020US208434

PATIENT
  Sex: Female

DRUGS (1)
  1. GILENYA [Suspect]
     Active Substance: FINGOLIMOD HYDROCHLORIDE
     Indication: MULTIPLE SCLEROSIS
     Dosage: 0.5 MG, QD
     Route: 048

REACTIONS (8)
  - Pain [Unknown]
  - Exostosis [Unknown]
  - Pain in extremity [Unknown]
  - Eye disorder [Unknown]
  - Asthenia [Unknown]
  - Balance disorder [Unknown]
  - Depression [Unknown]
  - Asthenopia [Unknown]
